FAERS Safety Report 12677722 (Version 2)
Quarter: 2016Q3

REPORT INFORMATION
  Report Type: Report from Study
  Country: AR (occurrence: AR)
  Receive Date: 20160823
  Receipt Date: 20160902
  Transmission Date: 20161109
  Serious: Yes (Hospitalization)
  Sender: FDA-Public Use
  Company Number: PHHY2016AR114492

PATIENT
  Sex: Male

DRUGS (1)
  1. DIOVAN [Suspect]
     Active Substance: VALSARTAN
     Indication: HYPERTENSION
     Dosage: 80 OT, BID (UNITS NOT REPORTED)
     Route: 065
     Dates: start: 201604

REACTIONS (3)
  - Pollakiuria [Recovering/Resolving]
  - Urinary retention [Recovering/Resolving]
  - Dyskinesia [Recovering/Resolving]
